FAERS Safety Report 6738676-6 (Version None)
Quarter: 2010Q2

REPORT INFORMATION
  Report Type: 
  Country: None (occurrence: None)
  Receive Date: 20100524
  Receipt Date: 20100510
  Transmission Date: 20101027
  Serious: Yes (Other)
  Sender: FDA-Public Use
  Company Number: GB-MYLANLABS-2010S1008215

PATIENT
  Age: 20 Year
  Sex: Female

DRUGS (5)
  1. VENLAFAXINE HYDROCHLORIDE [Suspect]
     Indication: DEPRESSION
     Route: 048
     Dates: start: 20100413
  2. VENLAFAXINE HYDROCHLORIDE [Suspect]
     Route: 048
     Dates: start: 20100401, end: 20100412
  3. VENLAFAXINE HYDROCHLORIDE [Suspect]
     Route: 048
     Dates: start: 20100211, end: 20100331
  4. QUETIAPINE [Suspect]
     Indication: DEPRESSION
     Route: 048
     Dates: start: 20100308
  5. QUETIAPINE [Suspect]
     Indication: ANXIETY
     Route: 048
     Dates: start: 20100308

REACTIONS (5)
  - BALANCE DISORDER [None]
  - DIZZINESS [None]
  - EYE ROLLING [None]
  - MUSCLE SPASMS [None]
  - PALLOR [None]
